FAERS Safety Report 9031188 (Version 1)
Quarter: 2013Q1

REPORT INFORMATION
  Report Type: Spontaneous
  Country: US (occurrence: US)
  Receive Date: 20130123
  Receipt Date: 20130123
  Transmission Date: 20140127
  Serious: Yes (Other)
  Sender: FDA-Public Use
  Company Number: CHPA2013US001255

PATIENT
  Age: 35 Year
  Sex: Female

DRUGS (3)
  1. EX-LAX MAX STR LAX PILLS SENNA [Suspect]
     Indication: BOWEL MOVEMENT IRREGULARITY
     Dosage: 3 DF, UNK
     Route: 048
     Dates: start: 20130113
  2. EX-LAX MAX STR LAX PILLS SENNA [Suspect]
     Dosage: UNK, UNK
     Route: 048
     Dates: end: 2012
  3. EX-LAX MAX STR LAX PILLS SENNA [Suspect]
     Dosage: UNK, UNK
     Route: 048

REACTIONS (4)
  - Thrombosis [Recovered/Resolved]
  - Rectal haemorrhage [Recovered/Resolved]
  - Frequent bowel movements [Unknown]
  - Incorrect dose administered [Unknown]
